FAERS Safety Report 8312668-8 (Version None)
Quarter: 2012Q2

REPORT INFORMATION
  Report Type: 
  Country: None (occurrence: None)
  Receive Date: 20120426
  Receipt Date: 20120424
  Transmission Date: 20120825
  Serious: Yes (Hospitalization)
  Sender: FDA-Public Use
  Company Number: US-AMGEN-USASP2012025836

PATIENT
  Age: 57 Year
  Sex: Female

DRUGS (11)
  1. NEXIUM [Concomitant]
     Dosage: UNK
  2. CRESTOR [Concomitant]
  3. FISH OIL [Concomitant]
  4. VITAMIN D [Concomitant]
     Dosage: 25 IU, UNK
  5. PROLIA [Suspect]
     Indication: OSTEOPOROSIS POSTMENOPAUSAL
     Dates: start: 20111117
  6. FEMARA [Concomitant]
  7. AMBIEN [Concomitant]
  8. CALCIUM CITRATE WITH VITAMIN D [Concomitant]
  9. NORCO [Concomitant]
  10. EFFEXOR [Concomitant]
  11. LISINOPRIL [Concomitant]

REACTIONS (2)
  - EAR INFECTION [None]
  - DIVERTICULITIS [None]
